FAERS Safety Report 18622125 (Version 1)
Quarter: 2020Q4

REPORT INFORMATION
  Report Type: Spontaneous
  Country: GB (occurrence: GB)
  Receive Date: 20201216
  Receipt Date: 20201216
  Transmission Date: 20210114
  Serious: Yes (Other)
  Sender: FDA-Public Use
  Company Number: GB-ACCORD-210837

PATIENT
  Age: 59 Year
  Sex: Male
  Weight: 95 kg

DRUGS (5)
  1. LYRICA [Suspect]
     Active Substance: PREGABALIN
     Indication: ARACHNOIDITIS
     Route: 048
     Dates: start: 20201106
  2. AMITRIPTYLINE [Suspect]
     Active Substance: AMITRIPTYLINE
     Indication: ARACHNOIDITIS
     Route: 048
     Dates: start: 20201106
  3. PARACETAMOL [Concomitant]
     Active Substance: ACETAMINOPHEN
  4. CODEINE [Concomitant]
     Active Substance: CODEINE
  5. ETORICOXIB. [Suspect]
     Active Substance: ETORICOXIB
     Indication: ARACHNOIDITIS
     Route: 048
     Dates: start: 20201106, end: 20201116

REACTIONS (4)
  - Somnolence [Recovering/Resolving]
  - Sensory disturbance [Unknown]
  - Eye movement disorder [Recovering/Resolving]
  - Unresponsive to stimuli [Recovering/Resolving]

NARRATIVE: CASE EVENT DATE: 20201107
